FAERS Safety Report 4507742-8 (Version None)
Quarter: 2004Q4

REPORT INFORMATION
  Report Type: 
  Country: None (occurrence: None)
  Receive Date: 20041018
  Receipt Date: 20040809
  Transmission Date: 20050328
  Serious: No
  Sender: FDA-Public Use
  Company Number: 207081

PATIENT
  Age: 33 Year
  Sex: Female
  Weight: 58 kg

DRUGS (2)
  1. XOLAIR [Suspect]
     Indication: ASTHMA
     Dosage: 150MG, Q4W, SUBCUTANEOUS
     Route: 058
     Dates: start: 20040423
  2. ALLERGY IMMUNOTHERAPY (ALLERGENIC EXTRACTS) [Concomitant]

REACTIONS (3)
  - DYSPHAGIA [None]
  - RASH [None]
  - THROAT TIGHTNESS [None]
